FAERS Safety Report 4500587-4 (Version None)
Quarter: 2004Q4

REPORT INFORMATION
  Report Type: 
  Country: None (occurrence: None)
  Receive Date: 20041115
  Receipt Date: 20041102
  Transmission Date: 20050328
  Serious: Yes (Death)
  Sender: FDA-Public Use
  Company Number: NZ-ABBOTT-04P-118-0279664-00

PATIENT
  Sex: Female

DRUGS (13)
  1. SEVOFLURANE [Suspect]
     Indication: OPEN FRACTURE
     Dosage: 3 MAC/HOUR
     Dates: start: 20031222
  2. ALENDRONATE SODIUM [Concomitant]
     Indication: DRUG USE FOR UNKNOWN INDICATION
     Dates: start: 20031222
  3. FUROSEMIDE [Concomitant]
     Indication: DRUG USE FOR UNKNOWN INDICATION
     Dates: start: 20031222
  4. OMEPRAZOLE [Concomitant]
     Indication: DRUG USE FOR UNKNOWN INDICATION
  5. QUININE [Concomitant]
     Indication: DRUG USE FOR UNKNOWN INDICATION
     Dates: start: 20031222
  6. CILAZAPRIL [Concomitant]
     Indication: DRUG USE FOR UNKNOWN INDICATION
     Dates: start: 20031222
  7. CALCIUM [Concomitant]
     Indication: DRUG USE FOR UNKNOWN INDICATION
     Dates: start: 20031222
  8. POTASSIUM CHLORIDE [Concomitant]
     Indication: DRUG USE FOR UNKNOWN INDICATION
  9. CODEINE PHOSPHATE [Concomitant]
     Indication: DRUG USE FOR UNKNOWN INDICATION
  10. CYCLIZINE [Concomitant]
     Indication: DRUG USE FOR UNKNOWN INDICATION
  11. MORPHINE [Concomitant]
     Indication: DRUG USE FOR UNKNOWN INDICATION
  12. COLOXYL WITH SENNA [Concomitant]
     Indication: DRUG USE FOR UNKNOWN INDICATION
  13. LACTULOSE [Concomitant]
     Indication: DRUG USE FOR UNKNOWN INDICATION

REACTIONS (2)
  - HEPATIC ENZYME INCREASED [None]
  - SEPSIS [None]
